FAERS Safety Report 4308392-9 (Version None)
Quarter: 2004Q1

REPORT INFORMATION
  Report Type: 
  Country: None (occurrence: None)
  Receive Date: 20040301
  Receipt Date: 20030812
  Transmission Date: 20041129
  Serious: Yes (Death, Hospitalization)
  Sender: FDA-Public Use
  Company Number: SE-GLAXOSMITHKLINE-B0306563A

PATIENT
  Age: 73 Year
  Sex: Female

DRUGS (9)
  1. AVANDIA [Suspect]
     Indication: DIABETES MELLITUS
     Dosage: 4MG PER DAY
     Route: 048
  2. METFORMIN [Suspect]
     Indication: DIABETES MELLITUS
     Dosage: 2.5G PER DAY
     Route: 048
  3. NORVASC [Concomitant]
  4. ZOCORD [Concomitant]
  5. IMPUGAN [Concomitant]
  6. LORAZEPAM [Concomitant]
  7. PHYSIOTENS [Concomitant]
  8. APROVEL [Concomitant]
  9. DIURETIC [Concomitant]

REACTIONS (7)
  - BLOOD POTASSIUM INCREASED [None]
  - BLOOD SODIUM DECREASED [None]
  - CARDIAC FAILURE [None]
  - DEPRESSED LEVEL OF CONSCIOUSNESS [None]
  - DYSPNOEA EXACERBATED [None]
  - GASTROENTERITIS VIRAL [None]
  - LACTIC ACIDOSIS [None]
